FAERS Safety Report 10075511 (Version 1)
Quarter: 2014Q2

REPORT INFORMATION
  Report Type: Report from Study
  Country: CA (occurrence: CA)
  Receive Date: 20140414
  Receipt Date: 20140414
  Transmission Date: 20141212
  Serious: Yes (Other)
  Sender: FDA-Public Use
  Company Number: CA-JNJFOC-20140406435

PATIENT
  Age: 31 Year
  Sex: Male
  Weight: 78.6 kg

DRUGS (6)
  1. REMICADE [Suspect]
     Indication: CROHN^S DISEASE
     Dosage: HAD 46 INFUSIONS
     Route: 042
     Dates: start: 20100910
  2. IMURAN [Concomitant]
     Route: 065
  3. VITAMIN [Concomitant]
     Route: 065
  4. CANNABIS [Concomitant]
     Route: 065
  5. FLOVENT [Concomitant]
     Route: 065
  6. PROBIOTICS [Concomitant]
     Route: 065

REACTIONS (1)
  - Eosinophilic oesophagitis [Not Recovered/Not Resolved]
